FAERS Safety Report 14100953 (Version 1)
Quarter: 2017Q4

REPORT INFORMATION
  Report Type: Spontaneous
  Country: US (occurrence: None)
  Receive Date: 20171017
  Receipt Date: 20171017
  Transmission Date: 20180321
  Serious: Yes (Disabling)
  Sender: FDA-Public Use
  Company Number: None

PATIENT
  Age: 39 Year
  Sex: Female
  Weight: 66.68 kg

DRUGS (11)
  1. BUSPIRONE HCL 5MG TABS [Suspect]
     Active Substance: BUSPIRONE HYDROCHLORIDE
     Indication: DEPRESSION
     Route: 048
     Dates: start: 20150501
  2. LORATADINE. [Concomitant]
     Active Substance: LORATADINE
  3. OMEGA-3 FISH OIL [Concomitant]
     Active Substance: FISH OIL\OMEGA-3 FATTY ACIDS
  4. VITAMINS NOS [Concomitant]
     Active Substance: VITAMINS
  5. MSM [Concomitant]
     Active Substance: DIMETHYL SULFONE
  6. TURMERIC [Concomitant]
     Active Substance: HERBALS\TURMERIC
  7. NAPHAZ-PHENIRA [Concomitant]
  8. SERTRALINE HCL [Concomitant]
     Active Substance: SERTRALINE HYDROCHLORIDE
  9. FLUTICASONE PROPIONATE. [Concomitant]
     Active Substance: FLUTICASONE PROPIONATE
  10. PROVENTIL HFA [Concomitant]
     Active Substance: ALBUTEROL SULFATE
  11. GLUCOSAMINE CHONDROITIN [Concomitant]
     Active Substance: CHONDROITIN SULFATE (BOVINE)\GLUCOSAMINE HYDROCHLORIDE

REACTIONS (2)
  - Contusion [None]
  - Epistaxis [None]

NARRATIVE: CASE EVENT DATE: 20160524
